FAERS Safety Report 9205917 (Version 1)
Quarter: 2013Q2

REPORT INFORMATION
  Report Type: Spontaneous
  Country: JP (occurrence: JP)
  Receive Date: 20130403
  Receipt Date: 20130411
  Transmission Date: 20140414
  Serious: Yes (Life-Threatening, Hospitalization)
  Sender: FDA-Public Use
  Company Number: JP-BAYER-2013-037728

PATIENT
  Age: 69 Year
  Sex: Male
  Weight: 60 kg

DRUGS (7)
  1. EOB PRIMOVIST [Suspect]
     Indication: NUCLEAR MAGNETIC RESONANCE IMAGING
     Dosage: 6.200 ML, ONCE
     Route: 042
     Dates: start: 20130322, end: 20130322
  2. EOB PRIMOVIST [Suspect]
     Indication: HEPATIC CANCER
  3. EOB PRIMOVIST [Suspect]
     Indication: HEPATIC FUNCTION ABNORMAL
  4. GLIMEPIRIDE [Concomitant]
     Dosage: DAILY DOSE 3 MG
     Route: 048
  5. LIVALO [Concomitant]
     Dosage: DAILY DOSE 1 MG
     Route: 048
  6. SALOBEL [Concomitant]
     Dosage: DAILY DOSE 100 MG
     Route: 048
  7. METFORMIN HYDROCHLORIDE [Concomitant]
     Dosage: DAILY DOSE 500 MG
     Route: 048

REACTIONS (5)
  - Anaphylactic shock [Recovering/Resolving]
  - Hyperhidrosis [Recovering/Resolving]
  - Blood pressure decreased [Recovering/Resolving]
  - Generalised erythema [Recovering/Resolving]
  - Urinary incontinence [Recovering/Resolving]
